FAERS Safety Report 25277309 (Version 2)
Quarter: 2025Q2

REPORT INFORMATION
  Report Type: Spontaneous
  Country: AU (occurrence: AU)
  Receive Date: 20250507
  Receipt Date: 20250530
  Transmission Date: 20250716
  Serious: Yes (Other)
  Sender: TAKEDA
  Company Number: AU-TAKEDA-2025TUS040517

PATIENT
  Age: 33 Year
  Sex: Female

DRUGS (2)
  1. ENTYVIO [Suspect]
     Active Substance: VEDOLIZUMAB
     Indication: Product used for unknown indication
  2. ENTYVIO [Suspect]
     Active Substance: VEDOLIZUMAB
     Dosage: 300 MILLIGRAM, Q4WEEKS

REACTIONS (5)
  - Rectal haemorrhage [Unknown]
  - Pregnancy [Unknown]
  - Maternal exposure during breast feeding [Unknown]
  - Frequent bowel movements [Unknown]
  - Faecal calprotectin increased [Unknown]
